FAERS Safety Report 14354461 (Version 1)
Quarter: 2018Q1

REPORT INFORMATION
  Report Type: Report from Study
  Country: US (occurrence: US)
  Receive Date: 20180105
  Receipt Date: 20180105
  Transmission Date: 20180509
  Serious: Yes (Death)
  Sender: FDA-Public Use
  Company Number: US-BAYER-2017-237408

PATIENT
  Sex: Female

DRUGS (1)
  1. ADEMPAS [Suspect]
     Active Substance: RIOCIGUAT
     Indication: PULMONARY ARTERIAL HYPERTENSION
     Dosage: 0.5 MG, TID
     Route: 048
     Dates: start: 20171109

REACTIONS (4)
  - Oedema [Recovered/Resolved]
  - Hypotension [Not Recovered/Not Resolved]
  - Death [Fatal]
  - Headache [None]

NARRATIVE: CASE EVENT DATE: 2017
